FAERS Safety Report 10606631 (Version 1)
Quarter: 2014Q4

REPORT INFORMATION
  Report Type: Spontaneous
  Country: US (occurrence: None)
  Receive Date: 20141124
  Receipt Date: 20141124
  Transmission Date: 20150529
  Serious: Yes (Disabling, Other)
  Sender: FDA-Public Use
  Company Number: None

PATIENT
  Age: 47 Year
  Sex: Female
  Weight: 56.7 kg

DRUGS (1)
  1. SIMVASTATIN. [Suspect]
     Active Substance: SIMVASTATIN
     Indication: HYPERLIPIDAEMIA
     Dosage: 1 PILL IN EVENING, ONCE DAILY, TAKEN BY MOUTH
     Route: 048
     Dates: start: 20140924, end: 20141122

REACTIONS (8)
  - Constipation [None]
  - Flatulence [None]
  - Chills [None]
  - Muscle spasms [None]
  - Back pain [None]
  - Abdominal pain upper [None]
  - Nasal congestion [None]
  - Alopecia [None]

NARRATIVE: CASE EVENT DATE: 20141002
